FAERS Safety Report 6073388-6 (Version None)
Quarter: 2009Q1

REPORT INFORMATION
  Report Type: 
  Country: None (occurrence: None)
  Receive Date: 20090205
  Receipt Date: 20090127
  Transmission Date: 20090719
  Serious: Yes (Hospitalization)
  Sender: FDA-Public Use
  Company Number: PHBS2005CH16643

PATIENT
  Age: 90 Year
  Sex: Female

DRUGS (16)
  1. TEGRETOL [Suspect]
     Indication: TRIGEMINAL NEURALGIA
     Dosage: 200 MG, BID
     Dates: start: 19980101, end: 20040826
  2. PHYSIOTENS (MOXONIDINE) [Suspect]
     Indication: HYPERTENSION
  3. THIAZIDES (NO INGREDIENTS/SUBSTANCES) [Suspect]
  4. CALCIUM CHANNEL BLOCKERS (NO INGREDIENTS/SUBSTANCES) [Suspect]
  5. ACE INHIBITORS AND DIURETICS (NO INGREDIENTS/SUBSTANCES) [Suspect]
  6. ATACAND [Suspect]
     Indication: HYPERTENSION
  7. ATACAND HCT [Suspect]
     Indication: HYPERTENSION
     Dosage: 16 MG/DAY
     Dates: start: 20040813, end: 20040824
  8. CARVEDILOL [Suspect]
     Dosage: 12.5 MG/DAY
     Dates: start: 20040806, end: 20040821
  9. TORSEMIDE [Suspect]
     Dosage: 5 MG/DAY
     Dates: end: 20040820
  10. NORVASC [Suspect]
     Indication: HYPERTENSION
     Dosage: 10 MG/DAY
     Dates: start: 20040815
  11. NITRODERM [Concomitant]
  12. CLONAZEPAM [Concomitant]
  13. PLAVIX [Concomitant]
  14. TOLVON (MIANSERIN HYDROCHLORIDE) [Concomitant]
  15. SELIPRAN (PRAVASTATIN SODIUM) [Concomitant]
  16. ZOLPIDEM TARTRATE [Concomitant]

REACTIONS (11)
  - BLOOD PRESSURE INADEQUATELY CONTROLLED [None]
  - CARDIAC FAILURE [None]
  - DISEASE RECURRENCE [None]
  - DRUG INEFFECTIVE [None]
  - DRUG INTERACTION [None]
  - DRUG RESISTANCE [None]
  - HYPERTENSION [None]
  - HYPOTENSION [None]
  - LEFT VENTRICULAR HYPERTROPHY [None]
  - SYSTOLIC HYPERTENSION [None]
  - TRIGEMINAL NEURALGIA [None]
